FAERS Safety Report 10184431 (Version 1)
Quarter: 2014Q2

REPORT INFORMATION
  Report Type: Spontaneous
  Country: US (occurrence: US)
  Receive Date: 20140521
  Receipt Date: 20140521
  Transmission Date: 20141212
  Serious: Yes (Hospitalization)
  Sender: FDA-Public Use
  Company Number: 2014SP002791

PATIENT
  Age: 71 Year
  Sex: Male
  Weight: 104.4 kg

DRUGS (6)
  1. DOXORUBICIN [Suspect]
     Indication: LEIOMYOSARCOMA
     Dates: start: 20131001, end: 20131001
  2. DOXORUBICIN [Suspect]
     Indication: LEIOMYOSARCOMA
     Dates: start: 20131022
  3. PROCHLORPERAZINE EDISYLATE [Concomitant]
     Dates: start: 20131003
  4. OXYCODONE [Concomitant]
     Dates: start: 20131003
  5. PEGFILGRASTIM [Concomitant]
     Dates: start: 20131001
  6. MAGNESIUM HYDROXIDE [Concomitant]

REACTIONS (4)
  - Embolism [Recovered/Resolved]
  - Pulmonary embolism [Recovered/Resolved]
  - Deep vein thrombosis [Recovered/Resolved]
  - Dyspnoea exertional [Recovered/Resolved]
